FAERS Safety Report 7338555-X (Version None)
Quarter: 2011Q1

REPORT INFORMATION
  Report Type: 
  Country: None (occurrence: None)
  Receive Date: 20110308
  Receipt Date: 20110106
  Transmission Date: 20110831
  Serious: No
  Sender: FDA-Public Use
  Company Number: US-B.I. PHARMACEUTICALS,INC./RIDGEFIELD-2010-BP-14926BP

PATIENT
  Sex: Male

DRUGS (10)
  1. PRADAXA [Suspect]
     Indication: ATRIAL FIBRILLATION
     Dosage: 300 MG
     Route: 048
     Dates: start: 20101101, end: 20101209
  2. ASPIRIN [Concomitant]
     Indication: PROPHYLAXIS
     Dosage: 81 MG
  3. HYDRALAZINE [Concomitant]
     Dosage: 50 MG
  4. FLOMAX [Concomitant]
     Indication: PROSTATIC DISORDER
     Dosage: 0.4 MG
  5. NITROGLYCERIN [Concomitant]
     Indication: DIZZINESS
     Dosage: 13 MG
     Dates: start: 20101001
  6. FINASTERIDE [Concomitant]
     Indication: PROSTATIC DISORDER
     Dosage: 5 MG
  7. PRADAXA [Suspect]
     Dosage: 150 MG
     Route: 048
     Dates: start: 20101210
  8. DOCUSATE SODIUM [Concomitant]
     Indication: CONSTIPATION PROPHYLAXIS
  9. OMEPRAZOLE [Concomitant]
     Indication: DYSPEPSIA
  10. MULTAQ [Concomitant]
     Indication: ATRIAL FIBRILLATION
     Dates: end: 20101209

REACTIONS (1)
  - DIZZINESS [None]
